FAERS Safety Report 4350566-5 (Version None)
Quarter: 2004Q2

REPORT INFORMATION
  Report Type: 
  Country: None (occurrence: None)
  Receive Date: 20040427
  Receipt Date: 20040412
  Transmission Date: 20050107
  Serious: Yes (Other)
  Sender: FDA-Public Use
  Company Number: 2004-BP-00884BP

PATIENT
  Age: 34 Year
  Sex: Male

DRUGS (3)
  1. MIRAPEX [Suspect]
     Indication: PARKINSON'S DISEASE
     Dosage: PO
     Route: 048
     Dates: end: 20020601
  2. REQUIP [Suspect]
  3. SINEMET [Suspect]
     Dosage: 1 TID

REACTIONS (6)
  - ABNORMAL BEHAVIOUR [None]
  - COMPULSIONS [None]
  - INSOMNIA [None]
  - OBSESSIVE-COMPULSIVE DISORDER [None]
  - PATHOLOGICAL GAMBLING [None]
  - SEXUAL DYSFUNCTION [None]
